FAERS Safety Report 10619713 (Version 1)
Quarter: 2014Q4

REPORT INFORMATION
  Report Type: Spontaneous
  Country: NL (occurrence: None)
  Receive Date: 20141126
  Receipt Date: 20141126
  Transmission Date: 20150529
  Serious: Yes (Other)
  Sender: FDA-Public Use
  Company Number: IPC201411-000628

PATIENT
  Sex: Male

DRUGS (4)
  1. ATORVASTATIN (ATORVASTATIN) (ATORVASTATIN) [Suspect]
     Active Substance: ATORVASTATIN
     Indication: ARRHYTHMIA
  2. DIGOXIN. [Concomitant]
     Active Substance: DIGOXIN
  3. PHENPROCOUMON [Concomitant]
     Active Substance: PHENPROCOUMON
  4. METOPROLOL TARTRATE (METOPROLOL TARTRATE) (METOPROLOL TARTRATE) [Suspect]
     Active Substance: METOPROLOL TARTRATE

REACTIONS (1)
  - Muscle rupture [None]
